FAERS Safety Report 24293503 (Version 1)
Quarter: 2024Q3

REPORT INFORMATION
  Report Type: Report from Study
  Country: CA (occurrence: CA)
  Receive Date: 20240906
  Receipt Date: 20240906
  Transmission Date: 20241017
  Serious: Yes (Other)
  Sender: TEVA
  Company Number: CA-TEVA-VS-3240210

PATIENT
  Age: 65 Year
  Sex: Male

DRUGS (1)
  1. AJOVY [Suspect]
     Active Substance: FREMANEZUMAB-VFRM
     Indication: Migraine prophylaxis
     Route: 058
     Dates: start: 20230601, end: 202405

REACTIONS (5)
  - Erectile dysfunction [Unknown]
  - Irritability [Unknown]
  - Depression [Unknown]
  - Amnesia [Unknown]
  - Loss of libido [Unknown]
